FAERS Safety Report 14221526 (Version 1)
Quarter: 2017Q4

REPORT INFORMATION
  Report Type: Spontaneous
  Country: MX (occurrence: MX)
  Receive Date: 20171124
  Receipt Date: 20171124
  Transmission Date: 20180321
  Serious: Yes (Other)
  Sender: FDA-Public Use
  Company Number: MX-PFIZER INC-2017503429

PATIENT
  Age: 84 Year
  Sex: Female

DRUGS (4)
  1. INSPRA [Suspect]
     Active Substance: EPLERENONE
     Dosage: 25 MG, UNK
  2. SELOKEN /00376902/ [Concomitant]
     Active Substance: METOPROLOL TARTRATE
  3. XARELTO [Concomitant]
     Active Substance: RIVAROXABAN
  4. PANTOPRAZOL [Concomitant]
     Active Substance: PANTOPRAZOLE SODIUM

REACTIONS (2)
  - Cerebral infarction [Not Recovered/Not Resolved]
  - Aphasia [Not Recovered/Not Resolved]
